FAERS Safety Report 4915718-1 (Version None)
Quarter: 2006Q1

REPORT INFORMATION
  Report Type: 
  Country: None (occurrence: None)
  Receive Date: 20060217
  Receipt Date: 20060208
  Transmission Date: 20060701
  Serious: Yes (Hospitalization)
  Sender: FDA-Public Use
  Company Number: FR-JNJFOC-20060202153

PATIENT
  Age: 65 Year
  Sex: Female

DRUGS (15)
  1. REMICADE [Suspect]
     Route: 042
  2. REMICADE [Suspect]
     Route: 042
  3. REMICADE [Suspect]
     Route: 042
  4. REMICADE [Suspect]
     Dosage: 4 MG/KG
     Route: 042
  5. REMICADE [Suspect]
     Route: 042
  6. REMICADE [Suspect]
     Route: 042
  7. REMICADE [Suspect]
     Route: 042
  8. REMICADE [Suspect]
     Indication: RHEUMATOID ARTHRITIS
     Dosage: 3MG/KG
     Route: 042
  9. ADALIMUMAB [Suspect]
     Indication: RHEUMATOID ARTHRITIS
     Route: 058
  10. CORTANCYL [Concomitant]
     Route: 048
  11. METHOTREXATE [Concomitant]
     Route: 030
  12. SPECIAFOLDINE [Concomitant]
     Route: 065
  13. CALCIUM GLUCONATE [Concomitant]
     Route: 065
  14. VITAMIN D [Concomitant]
     Route: 065
  15. BIPHOSPHONATE [Concomitant]
     Route: 065

REACTIONS (7)
  - ARTERIAL THROMBOSIS [None]
  - CEREBROVASCULAR ACCIDENT [None]
  - CONJUNCTIVAL HAEMORRHAGE [None]
  - EXOPHTHALMOS [None]
  - LUNG NEOPLASM MALIGNANT [None]
  - MENINGIOMA [None]
  - URINARY TRACT INFECTION [None]
